FAERS Safety Report 10447262 (Version 1)
Quarter: 2014Q3

REPORT INFORMATION
  Report Type: Spontaneous
  Country: US (occurrence: US)
  Receive Date: 20140911
  Receipt Date: 20140911
  Transmission Date: 20150326
  Serious: Yes (Hospitalization, Disabling)
  Sender: FDA-Public Use
  Company Number: PHEH2014US017679

PATIENT
  Sex: Female

DRUGS (1)
  1. ZELNORM [Suspect]
     Active Substance: TEGASEROD MALEATE
     Dosage: UNK UKN, TID
     Dates: start: 2001, end: 2009

REACTIONS (7)
  - Renal impairment [Unknown]
  - Dehydration [Unknown]
  - Blood magnesium abnormal [Unknown]
  - Muscle disorder [Unknown]
  - Constipation [Unknown]
  - Coeliac disease [Unknown]
  - Blood calcium abnormal [Unknown]

NARRATIVE: CASE EVENT DATE: 2009
